FAERS Safety Report 15715125 (Version 2)
Quarter: 2019Q1

REPORT INFORMATION
  Report Type: Spontaneous
  Country: US (occurrence: US)
  Receive Date: 20181212
  Receipt Date: 20190328
  Transmission Date: 20190417
  Serious: No
  Sender: FDA-Public Use
  Company Number: US-PFIZER INC-2018505695

PATIENT
  Age: 13 Year
  Sex: Male
  Weight: 38.56 kg

DRUGS (1)
  1. GENOTROPIN [Suspect]
     Active Substance: SOMATROPIN
     Indication: BODY HEIGHT BELOW NORMAL
     Dosage: 1.6 MG, DAILY
     Route: 058
     Dates: start: 2009, end: 20181203

REACTIONS (3)
  - Product dose omission [Unknown]
  - Pharyngitis streptococcal [Recovering/Resolving]
  - Wrong technique in device usage process [Unknown]

NARRATIVE: CASE EVENT DATE: 20181202
